FAERS Safety Report 6137235-6 (Version None)
Quarter: 2009Q1

REPORT INFORMATION
  Report Type: 
  Country: None (occurrence: None)
  Receive Date: 20090330
  Receipt Date: 20090325
  Transmission Date: 20090719
  Serious: Yes (Life-Threatening, Hospitalization, Other)
  Sender: FDA-Public Use
  Company Number: PHHY2009FR11416

PATIENT
  Sex: Female

DRUGS (1)
  1. FEMARA [Suspect]
     Indication: BREAST CANCER
     Dosage: 2.5 MG QD
     Route: 048
     Dates: start: 20080101, end: 20090101

REACTIONS (5)
  - ACUTE MYELOID LEUKAEMIA [None]
  - BREAST CANCER [None]
  - CARDIAC FAILURE [None]
  - LYMPHADENOPATHY [None]
  - PANCYTOPENIA [None]
